FAERS Safety Report 13030462 (Version 1)
Quarter: 2016Q4

REPORT INFORMATION
  Report Type: Spontaneous
  Country: NO (occurrence: NO)
  Receive Date: 20161215
  Receipt Date: 20161215
  Transmission Date: 20170207
  Serious: Yes (Disabling)
  Sender: FDA-Public Use
  Company Number: NO-009507513-1612NOR002602

PATIENT
  Age: 68 Year
  Sex: Female

DRUGS (1)
  1. FOSAMAX [Suspect]
     Active Substance: ALENDRONATE SODIUM
     Indication: OSTEOPOROSIS
     Dosage: 70 MG ONCE WEEKLY
     Route: 048
     Dates: end: 2013

REACTIONS (3)
  - Osteonecrosis [Recovered/Resolved with Sequelae]
  - Gingivitis [Recovered/Resolved with Sequelae]
  - Toothache [Recovered/Resolved with Sequelae]

NARRATIVE: CASE EVENT DATE: 2013
